FAERS Safety Report 7750325-7 (Version None)
Quarter: 2011Q3

REPORT INFORMATION
  Report Type: 
  Country: None (occurrence: None)
  Receive Date: 20110914
  Receipt Date: 20110912
  Transmission Date: 20111222
  Serious: Yes (Death)
  Sender: FDA-Public Use
  Company Number: IT-PFIZER INC-2011207538

PATIENT
  Age: 65 Year
  Sex: Female

DRUGS (7)
  1. DOMPERIDONE [Concomitant]
     Dosage: 40 MG, UNK
     Route: 048
  2. PREDNISONE [Concomitant]
     Dosage: 12.5 MG, UNK
  3. DURAGESIC-100 [Concomitant]
  4. SUTENT [Suspect]
     Indication: RENAL CELL CARCINOMA
     Dosage: 25 MG, 1X/DAY, 4 WEEKS ON AND 2 WEEKS OFF
     Route: 048
     Dates: start: 20110819
  5. TORADOL [Concomitant]
     Dosage: 20 MG, UNK
  6. DANKA [Concomitant]
     Dosage: 20 DROPS
  7. CLOZAPINE [Concomitant]
     Dosage: 25 MG, UNK

REACTIONS (1)
  - CIRCULATORY COLLAPSE [None]
